FAERS Safety Report 9792699 (Version 3)
Quarter: 2014Q2

REPORT INFORMATION
  Report Type: Report from Study
  Country: US (occurrence: US)
  Receive Date: 20140102
  Receipt Date: 20140523
  Transmission Date: 20141212
  Serious: Yes (Other)
  Sender: FDA-Public Use
  Company Number: US-SANOFI-AVENTIS-2013SA021887

PATIENT
  Age: 60 Year
  Sex: Female

DRUGS (2)
  1. AUBAGIO [Suspect]
     Indication: MULTIPLE SCLEROSIS
     Route: 048
     Dates: start: 20130212
  2. OTHER RESPIRATORY SYSTEM PRODUCTS [Concomitant]

REACTIONS (8)
  - Pneumonia [Unknown]
  - Bronchitis [Unknown]
  - White blood cell count increased [Recovered/Resolved]
  - Fatigue [Unknown]
  - Urinary tract infection [Recovered/Resolved]
  - Diarrhoea [Unknown]
  - Labile blood pressure [Unknown]
  - Alopecia [Recovering/Resolving]
